FAERS Safety Report 7972624-6 (Version None)
Quarter: 2011Q4

REPORT INFORMATION
  Report Type: 
  Country: None (occurrence: None)
  Receive Date: 20111213
  Receipt Date: 20111202
  Transmission Date: 20120403
  Serious: Yes (Life-Threatening, Hospitalization)
  Sender: FDA-Public Use
  Company Number: TR-JNJFOC-20111201957

PATIENT
  Sex: Female

DRUGS (3)
  1. REMICADE [Suspect]
     Indication: PSORIASIS
     Route: 042
     Dates: start: 20111129
  2. REMICADE [Suspect]
     Route: 042
     Dates: start: 20100501, end: 20110501
  3. REMICADE [Suspect]
     Dosage: INFLIXIMAB WAS RE-STARTED AT 0, 2 AND 6 WEEKS.
     Route: 042
     Dates: start: 20111015

REACTIONS (1)
  - BRAIN NEOPLASM [None]
